FAERS Safety Report 6894991-7 (Version None)
Quarter: 2010Q3

REPORT INFORMATION
  Report Type: 
  Country: None (occurrence: None)
  Receive Date: 20100802
  Receipt Date: 20100728
  Transmission Date: 20110219
  Serious: Yes (Hospitalization)
  Sender: FDA-Public Use
  Company Number: FR-ROCHE-718101

PATIENT
  Sex: Female
  Weight: 68 kg

DRUGS (13)
  1. BEVACIZUMAB [Suspect]
     Indication: NON-SMALL CELL LUNG CANCER
     Dosage: FREQUENCY: EACH CYCLE, LAST DOSE PRIOR TO SAE: 20 JULY 2010
     Route: 042
     Dates: start: 20100720
  2. PEMETREXED [Suspect]
     Indication: NON-SMALL CELL LUNG CANCER
     Dosage: FREQUENCY: EACH CYCLE, LAST DOSE PRIOR TO SAE: 20 JULY 2010
     Route: 042
     Dates: start: 20100720
  3. CISPLATIN [Suspect]
     Indication: NON-SMALL CELL LUNG CANCER
     Dosage: FREQUENCY: EACH CYCLE, LAST DOSE PRIOR TO SAE: 20 JULY 2010
     Route: 042
     Dates: start: 20100720
  4. SOLUPRED [Concomitant]
  5. LEVOTHYROXINE SODIUM [Concomitant]
  6. ZOLPIDEM [Concomitant]
  7. LYSANXIA [Concomitant]
  8. NEXIUM [Concomitant]
  9. BRICANYL [Concomitant]
  10. ZOPHREN [Concomitant]
     Dates: start: 20100720, end: 20100724
  11. EMEND [Concomitant]
     Dates: start: 20100720, end: 20100720
  12. EMEND [Concomitant]
     Dates: start: 20100721, end: 20100722
  13. MEDROL [Concomitant]
     Dates: start: 20100719, end: 20100723

REACTIONS (1)
  - DYSPHAGIA [None]
